FAERS Safety Report 24965389 (Version 1)
Quarter: 2025Q1

REPORT INFORMATION
  Report Type: Spontaneous
  Country: DE (occurrence: DE)
  Receive Date: 20250213
  Receipt Date: 20250213
  Transmission Date: 20250408
  Serious: Yes (Hospitalization)
  Sender: BAYER HEALTHCARE PHARMACEUTICALS INC.
  Company Number: None

PATIENT
  Age: 79 Year
  Sex: Male
  Weight: 80 kg

DRUGS (5)
  1. CIPROFLOXACIN HYDROCHLORIDE [Suspect]
     Active Substance: CIPROFLOXACIN HYDROCHLORIDE
     Indication: Urinary tract infection bacterial
     Dosage: 500 MG, BID
     Route: 048
     Dates: start: 20240514, end: 20240715
  2. CIPROFLOXACIN HYDROCHLORIDE [Suspect]
     Active Substance: CIPROFLOXACIN HYDROCHLORIDE
     Indication: Dysuria
  3. APIXABAN [Concomitant]
     Active Substance: APIXABAN
     Route: 048
  4. METOPROLOL [Concomitant]
     Active Substance: METOPROLOL
     Dosage: UNK UNK, QD
     Route: 048
  5. ROSUVASTATIN HEUMANN [Concomitant]
     Dosage: 10 MG, QD
     Route: 048

REACTIONS (4)
  - Groin pain [Recovered/Resolved]
  - Tendon pain [Recovered/Resolved]
  - Pain [Recovered/Resolved]
  - Walking aid user [Recovered/Resolved]

NARRATIVE: CASE EVENT DATE: 20240514
